FAERS Safety Report 15664727 (Version 1)
Quarter: 2018Q4

REPORT INFORMATION
  Report Type: Spontaneous
  Country: DK (occurrence: DK)
  Receive Date: 20181128
  Receipt Date: 20181128
  Transmission Date: 20190205
  Serious: Yes (Other)
  Sender: FDA-Public Use
  Company Number: DK-ALKEM LABORATORIES LIMITED-DK-ALKEM-2018-09527

PATIENT
  Age: 8 Year
  Sex: Female
  Weight: 32 kg

DRUGS (3)
  1. FENTANYL. [Concomitant]
     Active Substance: FENTANYL
     Indication: COLITIS
     Dosage: UNK
     Route: 042
  2. METHADONE HYDROCHLORIDE. [Suspect]
     Active Substance: METHADONE HYDROCHLORIDE
     Indication: COLITIS
     Dosage: 860 MG, QD
     Route: 042
  3. METHADONE HYDROCHLORIDE. [Suspect]
     Active Substance: METHADONE HYDROCHLORIDE
     Dosage: INCREASED TO 1560 MG, QD OVER 2 DAYS
     Route: 042

REACTIONS (1)
  - Hypoglycaemia [Recovered/Resolved]
